FAERS Safety Report 25215188 (Version 1)
Quarter: 2025Q2

REPORT INFORMATION
  Report Type: Report from Study
  Country: US (occurrence: US)
  Receive Date: 20250418
  Receipt Date: 20250418
  Transmission Date: 20250716
  Serious: Yes (Other)
  Sender: BIOCODEX
  Company Number: US-BIOCODEX2-2025000340

PATIENT
  Age: 5 Year
  Sex: Female
  Weight: 18.2 kg

DRUGS (7)
  1. DIACOMIT [Suspect]
     Active Substance: STIRIPENTOL
     Indication: Severe myoclonic epilepsy of infancy
     Dosage: 250MG BY MOUTH ONCE NIGHTLY AT BEDTIME
     Route: 048
     Dates: start: 20240207
  2. DIACOMIT [Suspect]
     Active Substance: STIRIPENTOL
     Indication: Severe myoclonic epilepsy of infancy
     Dosage: 500MG BY MOUTH ONCE DAILY AT BEDTIME
     Route: 048
     Dates: start: 20240207
  3. CLOBAZAM [Concomitant]
     Active Substance: CLOBAZAM
     Indication: Severe myoclonic epilepsy of infancy
     Route: 065
  4. CLONAZEPAM [Concomitant]
     Active Substance: CLONAZEPAM
     Indication: Product used for unknown indication
     Route: 065
  5. EPIDIOLEX [Concomitant]
     Active Substance: CANNABIDIOL
     Indication: Product used for unknown indication
     Route: 065
  6. LEVOTHYROXINE [Concomitant]
     Active Substance: LEVOTHYROXINE
     Indication: Product used for unknown indication
     Route: 065
  7. valproic acid and derivatives [Concomitant]
     Indication: Product used for unknown indication
     Route: 065

REACTIONS (3)
  - Seizure [Unknown]
  - Inappropriate schedule of product administration [Unknown]
  - Off label use [Unknown]
